FAERS Safety Report 24306580 (Version 5)
Quarter: 2025Q2

REPORT INFORMATION
  Report Type: Report from Study
  Country: US (occurrence: US)
  Receive Date: 20240911
  Receipt Date: 20250403
  Transmission Date: 20250716
  Serious: Yes (Hospitalization)
  Sender: DECIPHERA PHARMACEUTICALS
  Company Number: US-DECIPHERA PHARMACEUTICALS LLC-2024US000773

PATIENT
  Age: 74 Year
  Sex: Female

DRUGS (2)
  1. QINLOCK [Suspect]
     Active Substance: RIPRETINIB
     Indication: Gastrointestinal stromal tumour
     Dosage: 50 MILLIGRAM, QD
     Route: 048
     Dates: start: 20200615
  2. QINLOCK [Suspect]
     Active Substance: RIPRETINIB
     Dosage: 50 MILLIGRAM, QD
     Route: 048

REACTIONS (3)
  - Infection [Unknown]
  - Influenza [Unknown]
  - Underdose [Unknown]

NARRATIVE: CASE EVENT DATE: 20200615
